FAERS Safety Report 11616535 (Version 1)
Quarter: 2015Q4

REPORT INFORMATION
  Report Type: Spontaneous
  Country: US (occurrence: US)
  Receive Date: 20151009
  Receipt Date: 20151009
  Transmission Date: 20160304
  Serious: No
  Sender: FDA-Public Use
  Company Number: US-SHIRE-US201512278

PATIENT
  Age: 38 Year
  Sex: Female

DRUGS (3)
  1. VPRIV [Suspect]
     Active Substance: VELAGLUCERASE ALFA
     Indication: GAUCHER^S DISEASE
     Dosage: 60 MG/KG, 1X/2WKS
     Route: 041
     Dates: start: 201205
  2. VPRIV [Suspect]
     Active Substance: VELAGLUCERASE ALFA
     Dosage: 60 MG/KG, 1X/2WKS
     Route: 041
     Dates: start: 200909, end: 200912
  3. VPRIV [Suspect]
     Active Substance: VELAGLUCERASE ALFA
     Dosage: 30 MG/KG, 1X/WEEK
     Route: 041
     Dates: start: 201204, end: 201205

REACTIONS (3)
  - Maternal exposure during pregnancy [Recovered/Resolved]
  - No adverse event [Recovered/Resolved]
  - Inappropriate schedule of drug administration [Recovered/Resolved]

NARRATIVE: CASE EVENT DATE: 201204
